FAERS Safety Report 19210671 (Version 2)
Quarter: 2021Q3

REPORT INFORMATION
  Report Type: Spontaneous
  Country: US (occurrence: US)
  Receive Date: 20210504
  Receipt Date: 20210810
  Transmission Date: 20211014
  Serious: No
  Sender: FDA-Public Use
  Company Number: US-ORGANON-O2104USA002202

PATIENT
  Sex: Female

DRUGS (1)
  1. NEXPLANON [Suspect]
     Active Substance: ETONOGESTREL
     Dosage: 1 IMPLANT, EVERY THREE YEARS, LEFT INNER ARM
     Route: 059
     Dates: start: 20191210, end: 20210422

REACTIONS (2)
  - No adverse event [Unknown]
  - Device breakage [Recovered/Resolved]
